FAERS Safety Report 19408547 (Version 1)
Quarter: 2021Q2

REPORT INFORMATION
  Report Type: Spontaneous
  Country: DE (occurrence: DE)
  Receive Date: 20210612
  Receipt Date: 20210612
  Transmission Date: 20210717
  Serious: Yes (Hospitalization)
  Sender: FDA-Public Use
  Company Number: DE-TEVA-2021-DE-1920544

PATIENT
  Age: 76 Year
  Sex: Female

DRUGS (15)
  1. CALCITRIOL. [Concomitant]
     Active Substance: CALCITRIOL
     Dosage: 25 MICROGRAM DAILY;   1?0?0?0,
     Route: 048
  2. BELOC?ZOK [Concomitant]
     Active Substance: METOPROLOL SUCCINATE
     Dosage: 95 MILLIGRAM DAILY;  1?0?1?0,
     Route: 048
  3. AMLODIPIN [Concomitant]
     Active Substance: AMLODIPINE BESYLATE
     Dosage: 10 MILLIGRAM DAILY;  1?0?1?0,
     Route: 048
  4. MAGNESIUM [Concomitant]
     Active Substance: MAGNESIUM
     Dosage: 300 MILLIGRAM DAILY;   0?0?1?0,
     Route: 048
  5. CANDESARTAN. [Concomitant]
     Active Substance: CANDESARTAN
     Dosage: 8 MILLIGRAM DAILY;  1?0?1?0,
     Route: 048
  6. ACETYLSALICYLSAEURE [Suspect]
     Active Substance: ASPIRIN
     Dosage: 100 MICROGRAM DAILY;  1?0?0?0,
     Route: 048
  7. DEKRISTOL 1000IE [Concomitant]
     Dosage: 3 DOSAGE FORMS DAILY; ?1000 IU, 3?0?0?0,
     Route: 048
  8. CLOPIDOGREL [Suspect]
     Active Substance: CLOPIDOGREL BISULFATE
     Dosage: 75 MILLIGRAM DAILY;   1?0?0?0,
     Route: 048
  9. EPOETIN DELTA [Concomitant]
     Active Substance: EPOETIN DELTA
     Dosage: 2000 IU, 1X THURSDAY,
     Route: 058
  10. BICANORM [Concomitant]
     Active Substance: SODIUM BICARBONATE
     Dosage: 3000 MILLIGRAM DAILY;  1?1?1?0,
     Route: 048
  11. PANTOPRAZOL [Concomitant]
     Active Substance: PANTOPRAZOLE SODIUM
     Dosage: 40 MILLIGRAM DAILY;   1?0?0?0,
     Route: 048
  12. TORASEMID [Concomitant]
     Active Substance: TORSEMIDE
     Dosage: 20 MILLIGRAM DAILY;  1?0?0?0,
     Route: 048
  13. BRIVARACETAM [Concomitant]
     Active Substance: BRIVARACETAM
     Dosage: 200 MILLIGRAM DAILY;   1?0?1?0,
     Route: 048
  14. BOSENTAN. [Concomitant]
     Active Substance: BOSENTAN
     Dosage: 250 MILLIGRAM DAILY;   1?0?1?0,
     Route: 048
  15. PROLIA [Concomitant]
     Active Substance: DENOSUMAB
     Dosage: 60 MG, EVERY 26 WEEKS,
     Route: 058

REACTIONS (3)
  - Dizziness [Unknown]
  - Haematochezia [Unknown]
  - Feeling cold [Unknown]
